FAERS Safety Report 13266923 (Version 1)
Quarter: 2017Q1

REPORT INFORMATION
  Report Type: Spontaneous
  Country: HU (occurrence: HU)
  Receive Date: 20170224
  Receipt Date: 20170224
  Transmission Date: 20170428
  Serious: Yes (Life-Threatening)
  Sender: FDA-Public Use
  Company Number: HU-ROCHE-1896677

PATIENT
  Age: 77 Year
  Sex: Male

DRUGS (4)
  1. ACTILYSE [Suspect]
     Active Substance: ALTEPLASE
     Indication: THROMBOLYSIS
     Route: 040
     Dates: start: 20170128, end: 20170128
  2. ACTILYSE [Suspect]
     Active Substance: ALTEPLASE
     Route: 041
     Dates: start: 20170128, end: 20170128
  3. MARFARIN [Concomitant]
     Active Substance: WARFARIN
     Indication: MYOCARDIAL INFARCTION
  4. MARFARIN [Concomitant]
     Active Substance: WARFARIN
     Indication: ATRIAL FIBRILLATION
     Route: 065

REACTIONS (7)
  - Left ventricular failure [Recovered/Resolved]
  - Respiratory failure [Recovered/Resolved]
  - Melaena [Recovered/Resolved]
  - Pulmonary oedema [Recovered/Resolved]
  - Tracheal haemorrhage [Recovered/Resolved]
  - Blood pressure decreased [Recovered/Resolved]
  - Seizure [Recovered/Resolved]

NARRATIVE: CASE EVENT DATE: 20170128
